FAERS Safety Report 8137338-0 (Version None)
Quarter: 2012Q1

REPORT INFORMATION
  Report Type: 
  Country: None (occurrence: None)
  Receive Date: 20120210
  Receipt Date: 20120130
  Transmission Date: 20120608
  Serious: Yes (Disabling)
  Sender: FDA-Public Use
  Company Number: 1000028049

PATIENT
  Age: 21 Year
  Sex: Female

DRUGS (1)
  1. LEXAPRO [Suspect]
     Dosage: OVERDOSE: 10 - 30 MG A DAY (10 MG), ORAL
     Route: 048

REACTIONS (3)
  - URINARY RETENTION [None]
  - ATONIC URINARY BLADDER [None]
  - OVERDOSE [None]
